FAERS Safety Report 21724784 (Version 1)
Quarter: 2022Q4

REPORT INFORMATION
  Report Type: Report from Study
  Country: JP (occurrence: JP)
  Receive Date: 20221214
  Receipt Date: 20221214
  Transmission Date: 20230112
  Serious: Yes (Other)
  Sender: FDA-Public Use
  Company Number: JP-CELLTRION INC.-2022JP020843

PATIENT

DRUGS (17)
  1. INVESTIGATIONAL BIOSIMILARS [Suspect]
     Active Substance: INVESTIGATIONAL BIOSIMILARS
     Indication: HER2 positive gastric cancer
     Dosage: 488 MILLIGRAM, QD
     Route: 041
     Dates: start: 20210908, end: 20210908
  2. INVESTIGATIONAL BIOSIMILARS [Suspect]
     Active Substance: INVESTIGATIONAL BIOSIMILARS
     Dosage: 366 MILLIGRAM, QD
     Route: 041
     Dates: start: 20210928, end: 20210928
  3. INVESTIGATIONAL BIOSIMILARS [Suspect]
     Active Substance: INVESTIGATIONAL BIOSIMILARS
     Dosage: 366 MILLIGRAM, QD
     Route: 041
     Dates: start: 20211019, end: 20211019
  4. INVESTIGATIONAL BIOSIMILARS [Suspect]
     Active Substance: INVESTIGATIONAL BIOSIMILARS
     Dosage: 366 MILLIGRAM, QD
     Route: 041
     Dates: start: 20211109, end: 20211109
  5. INVESTIGATIONAL BIOSIMILARS [Suspect]
     Active Substance: INVESTIGATIONAL BIOSIMILARS
     Dosage: 320 MILLIGRAM, QD
     Route: 041
     Dates: start: 20211130, end: 20211130
  6. CISPLATIN [Suspect]
     Active Substance: CISPLATIN
     Indication: HER2 positive gastric cancer
     Dosage: 110 MILLIGRAM, QD
     Route: 041
     Dates: start: 20210908, end: 20210908
  7. CISPLATIN [Suspect]
     Active Substance: CISPLATIN
     Dosage: 110 MILLIGRAM, QD
     Route: 041
     Dates: start: 20210928, end: 20210928
  8. CAPECITABINE [Suspect]
     Active Substance: CAPECITABINE
     Indication: HER2 positive gastric cancer
     Dosage: 300 MILLIGRAM, QD
     Route: 048
     Dates: start: 20210908, end: 20210919
  9. CAPECITABINE [Suspect]
     Active Substance: CAPECITABINE
     Dosage: 300 MILLIGRAM, QD
     Route: 048
     Dates: start: 20210928, end: 20211011
  10. CAPECITABINE [Suspect]
     Active Substance: CAPECITABINE
     Dosage: 300 MILLIGRAM, QD
     Route: 048
     Dates: start: 20211109, end: 20211122
  11. CAPECITABINE [Suspect]
     Active Substance: CAPECITABINE
     Dosage: UNK UNK, QD
     Route: 048
     Dates: start: 20211130, end: 20211213
  12. MAGNESIUM OXIDE [Concomitant]
     Active Substance: MAGNESIUM OXIDE
     Indication: Constipation prophylaxis
     Dosage: UNK
     Dates: start: 20210908, end: 20210928
  13. Hachiazule [Concomitant]
     Indication: Prophylaxis
     Dosage: UNK
     Dates: start: 20210908, end: 20210908
  14. DEXAMETHASONE [Concomitant]
     Active Substance: DEXAMETHASONE
     Indication: Prophylaxis
     Dosage: UNK
     Dates: start: 20210908, end: 20210908
  15. BETAMETHASONE VALERATE [Concomitant]
     Active Substance: BETAMETHASONE VALERATE
     Indication: Prophylaxis
     Dosage: UNK
     Dates: start: 20210908, end: 20210908
  16. DECADRON [Concomitant]
     Active Substance: DEXAMETHASONE
     Indication: Prophylaxis
     Dosage: UNK
     Dates: start: 20210908, end: 20211001
  17. OLANZAPINE [Concomitant]
     Active Substance: OLANZAPINE
     Indication: Prophylaxis
     Dosage: UNK
     Dates: start: 20210908, end: 20211001

REACTIONS (5)
  - Neutropenia [Not Recovered/Not Resolved]
  - Neuropathy peripheral [Not Recovered/Not Resolved]
  - Generalised oedema [Unknown]
  - Malaise [Recovered/Resolved]
  - Overdose [Unknown]

NARRATIVE: CASE EVENT DATE: 20210908
